FAERS Safety Report 5821455-1 (Version None)
Quarter: 2008Q3

REPORT INFORMATION
  Report Type: 
  Country: None (occurrence: None)
  Receive Date: 20080724
  Receipt Date: 20080717
  Transmission Date: 20090109
  Serious: Yes (Congenital Anomaly)
  Sender: FDA-Public Use
  Company Number: B0466488B

PATIENT
  Sex: Female
  Weight: 2.7 kg

DRUGS (1)
  1. ZEFFIX [Suspect]
     Dosage: 1TAB PER DAY
     Dates: start: 20051101, end: 20051216

REACTIONS (4)
  - DRUG EXPOSURE DURING PREGNANCY [None]
  - EXTRAPYRAMIDAL DISORDER [None]
  - NUCLEAR MAGNETIC RESONANCE IMAGING ABNORMAL [None]
  - PSYCHOMOTOR RETARDATION [None]
